FAERS Safety Report 8842269 (Version 3)
Quarter: 2013Q2

REPORT INFORMATION
  Report Type: Spontaneous
  Country: US (occurrence: US)
  Receive Date: 20121016
  Receipt Date: 20130614
  Transmission Date: 20140414
  Serious: Yes (Hospitalization, Disabling)
  Sender: FDA-Public Use
  Company Number: US-VERTEX PHARMACEUTICAL INC.-2012-022718

PATIENT
  Age: 45 Year
  Sex: Male
  Weight: 70.3 kg

DRUGS (6)
  1. KALYDECO [Suspect]
     Indication: CYSTIC FIBROSIS
     Dosage: 150 MG, BID
     Dates: start: 20120301, end: 20121027
  2. PANCREASE [Concomitant]
  3. PROTONIX [Concomitant]
  4. EFFEXOR [Concomitant]
  5. PULMOZYME [Concomitant]
  6. TOBRAMYCIN [Concomitant]

REACTIONS (6)
  - Diabetes mellitus [Not Recovered/Not Resolved]
  - Forced expiratory volume decreased [Unknown]
  - Fatigue [Unknown]
  - Exercise tolerance decreased [Unknown]
  - Impaired healing [Unknown]
  - Drug ineffective [Unknown]
